FAERS Safety Report 4599654-9 (Version None)
Quarter: 2005Q1

REPORT INFORMATION
  Report Type: 
  Country: None (occurrence: None)
  Receive Date: 20050303
  Receipt Date: 20050222
  Transmission Date: 20050727
  Serious: Yes (Life-Threatening)
  Sender: FDA-Public Use
  Company Number: SUS1-2005-00134

PATIENT
  Age: 11 Year
  Sex: Male
  Weight: 36.3 kg

DRUGS (1)
  1. ADDERALL XR 10 [Suspect]
     Indication: ATTENTION DEFICIT/HYPERACTIVITY DISORDER
     Dosage: 10 MG, 1X/DAY; QD
     Dates: start: 20030901, end: 20050201

REACTIONS (1)
  - SUPRAVENTRICULAR TACHYCARDIA [None]
